FAERS Safety Report 4781971-0 (Version None)
Quarter: 2005Q3

REPORT INFORMATION
  Report Type: 
  Country: None (occurrence: None)
  Receive Date: 20050927
  Receipt Date: 20050914
  Transmission Date: 20060218
  Serious: Yes (Death)
  Sender: FDA-Public Use
  Company Number: 2005129071

PATIENT
  Age: 39 Year
  Sex: Male

DRUGS (4)
  1. ATROPINE W/DIPHENOXYLATE (ATROPINE SULFATE, DIPHENOXYLATE HYDROCHLORID [Suspect]
     Indication: ILL-DEFINED DISORDER
  2. VENLAFAXINE HCL [Suspect]
     Indication: ILL-DEFINED DISORDER
  3. LORAZEPAM [Suspect]
     Indication: ILL-DEFINED DISORDER
  4. HYDROCODONE (HYDROCODONE) [Concomitant]

REACTIONS (5)
  - COMPLETED SUICIDE [None]
  - HYPOVENTILATION [None]
  - INTENTIONAL MISUSE [None]
  - MIOSIS [None]
  - MULTIPLE DRUG OVERDOSE [None]
